FAERS Safety Report 9731770 (Version 1)
Quarter: 2013Q4

REPORT INFORMATION
  Report Type: Spontaneous
  Country: DE (occurrence: DE)
  Receive Date: 20131204
  Receipt Date: 20131204
  Transmission Date: 20140711
  Serious: Yes (Hospitalization)
  Sender: FDA-Public Use
  Company Number: PHHY2013DE139489

PATIENT
  Age: 32 Year
  Sex: Female
  Weight: 55 kg

DRUGS (2)
  1. IMMUNOSPORIN [Suspect]
     Indication: UVEITIS
     Dosage: 75 MG, DAILY
     Route: 048
     Dates: start: 20131022
  2. NOVODIGAL [Concomitant]
     Indication: CARDIAC FAILURE
     Dosage: 0.2 MG, UNK
     Dates: start: 20130813

REACTIONS (5)
  - Tachycardia [Recovered/Resolved]
  - Dizziness [Recovered/Resolved]
  - Abdominal pain upper [Recovered/Resolved]
  - Tremor [Recovered/Resolved]
  - Nausea [Recovered/Resolved]
